FAERS Safety Report 11938189 (Version 1)
Quarter: 2016Q1

REPORT INFORMATION
  Report Type: Spontaneous
  Country: US (occurrence: US)
  Receive Date: 20160122
  Receipt Date: 20160122
  Transmission Date: 20160526
  Serious: No
  Sender: FDA-Public Use
  Company Number: US-WEST-WARD PHARMACEUTICALS CORP.-US-H14001-15-00802

PATIENT

DRUGS (3)
  1. ONDASETRON INJECTION USP [Suspect]
     Active Substance: ONDANSETRON
     Route: 042
     Dates: start: 20150510, end: 20150510
  2. ONDASETRON INJECTION USP [Suspect]
     Active Substance: ONDANSETRON
     Route: 042
     Dates: start: 201505, end: 201505
  3. ONDASETRON INJECTION USP [Suspect]
     Active Substance: ONDANSETRON
     Indication: PRODUCT USED FOR UNKNOWN INDICATION
     Route: 042
     Dates: start: 20150510, end: 20150510

REACTIONS (1)
  - Injection site pain [Recovered/Resolved]

NARRATIVE: CASE EVENT DATE: 20150510
